FAERS Safety Report 20706937 (Version 1)
Quarter: 2022Q2

REPORT INFORMATION
  Report Type: Spontaneous
  Country: JP (occurrence: JP)
  Receive Date: 20220413
  Receipt Date: 20220413
  Transmission Date: 20220721
  Serious: Yes (Life-Threatening, Other)
  Sender: FDA-Public Use
  Company Number: JP-SLATE RUN PHARMACEUTICALS-22JP001017

PATIENT

DRUGS (1)
  1. SODIUM NITROPRUSSIDE [Suspect]
     Active Substance: SODIUM NITROPRUSSIDE
     Indication: Coronary no-reflow phenomenon
     Dosage: REPEATED ADMINISTRATION

REACTIONS (2)
  - Ventricular fibrillation [Recovered/Resolved]
  - Treatment failure [Recovered/Resolved]
